FAERS Safety Report 5482906-8 (Version None)
Quarter: 2007Q4

REPORT INFORMATION
  Report Type: 
  Country: None (occurrence: None)
  Receive Date: 20071011
  Receipt Date: 20070927
  Transmission Date: 20080405
  Serious: Yes (Hospitalization, Disabling)
  Sender: FDA-Public Use
  Company Number: GB-RANBAXY-2007RR-10409

PATIENT

DRUGS (2)
  1. SIMVASTATIN TABLET 10MG [Suspect]
     Dosage: 10 MG, UNK
     Route: 048
  2. ASPIRIN TABLETS BP 300MG [Concomitant]

REACTIONS (2)
  - HAEMATURIA [None]
  - PROSTATIC HAEMORRHAGE [None]
